FAERS Safety Report 5913856-8 (Version None)
Quarter: 2008Q4

REPORT INFORMATION
  Report Type: 
  Country: None (occurrence: None)
  Receive Date: 20081009
  Receipt Date: 20081003
  Transmission Date: 20090506
  Serious: Yes (Life-Threatening)
  Sender: FDA-Public Use
  Company Number: A0750993A

PATIENT
  Age: 28 Year
  Sex: Female
  Weight: 78 kg

DRUGS (2)
  1. SERETIDE [Suspect]
     Indication: ASTHMA
     Route: 055
     Dates: start: 20080710
  2. UNKNOWN MEDICATION [Suspect]

REACTIONS (7)
  - ANAPHYLACTIC REACTION [None]
  - INITIAL INSOMNIA [None]
  - MIDDLE INSOMNIA [None]
  - OEDEMA [None]
  - PITYRIASIS [None]
  - VISION BLURRED [None]
  - WEIGHT INCREASED [None]
